FAERS Safety Report 13913840 (Version 1)
Quarter: 2017Q3

REPORT INFORMATION
  Report Type: Spontaneous
  Country: US (occurrence: US)
  Receive Date: 20170828
  Receipt Date: 20170828
  Transmission Date: 20171127
  Serious: No
  Sender: FDA-Public Use
  Company Number: US-ROCHE-1140620

PATIENT
  Sex: Male
  Weight: 66.9 kg

DRUGS (5)
  1. PREDNISONE. [Concomitant]
     Active Substance: PREDNISONE
     Route: 065
  2. ROCALTROL [Concomitant]
     Active Substance: CALCITRIOL
     Route: 065
  3. NUTROPIN AQ [Suspect]
     Active Substance: SOMATROPIN
     Indication: RENAL TRANSPLANT
     Route: 058
     Dates: start: 19980311
  4. IMURAN [Concomitant]
     Active Substance: AZATHIOPRINE
     Route: 065
  5. GANTRISIN [Concomitant]
     Active Substance: SULFISOXAZOLE ACETYL
     Route: 065

REACTIONS (3)
  - Dehydration [Unknown]
  - Haematuria [Unknown]
  - Onychomycosis [Unknown]
